FAERS Safety Report 24396926 (Version 2)
Quarter: 2024Q4

REPORT INFORMATION
  Report Type: Report from Study
  Country: JP (occurrence: JP)
  Receive Date: 20241004
  Receipt Date: 20241017
  Transmission Date: 20250114
  Serious: Yes (Hospitalization)
  Sender: INSMED
  Company Number: JP-INSMED, INC.-2023-04917-JP

PATIENT
  Age: 80 Year
  Sex: Female

DRUGS (1)
  1. ARIKAYCE [Suspect]
     Active Substance: AMIKACIN
     Indication: Mycobacterium avium complex infection
     Dosage: UNK UNK
     Route: 055
     Dates: start: 20231205, end: 20240910

REACTIONS (11)
  - Hospitalisation [Unknown]
  - Physical deconditioning [Recovering/Resolving]
  - Sitting disability [Unknown]
  - Back pain [Unknown]
  - Oropharyngeal discomfort [Unknown]
  - Dysphonia [Recovering/Resolving]
  - Malaise [Unknown]
  - Product storage error [Unknown]
  - Product dose omission issue [Unknown]
  - Product use issue [Unknown]
  - Therapy interrupted [Unknown]

NARRATIVE: CASE EVENT DATE: 20231201
